FAERS Safety Report 8577450 (Version 2)
Quarter: 2013Q4

REPORT INFORMATION
  Report Type: Spontaneous
  Country: GB (occurrence: None)
  Receive Date: 20120518
  Receipt Date: 20131001
  Transmission Date: 20140711
  Serious: Yes (Death, Life-Threatening, Other)
  Sender: FDA-Public Use
  Company Number: GER/UKI/12/0023899

PATIENT
  Age: 70 Year
  Sex: Female
  Weight: 80 kg

DRUGS (7)
  1. CIPROFLOXACIN [Suspect]
     Indication: INFECTION
     Dosage: 1 DOSAGE FORMS, 2 IN 1 D, ORAL, 2 GM
     Route: 048
     Dates: start: 20110329, end: 20120405
  2. METHOTREXATE [Suspect]
     Indication: PSORIATIC ARTHROPATHY
     Dosage: 20 MG, 1 IN 1 WK, ORAL
     Route: 048
     Dates: end: 20120407
  3. PIPERACILLIN AND TAZOBACTAM [Suspect]
     Indication: INFECTION
     Dosage: 4.5 MG, 2 IN 1 D, INTRAVENOUS (NOT OTHERWISE SPECIFIED)
     Route: 042
     Dates: start: 20120405
  4. ALLOPURINOL [Concomitant]
  5. GENTAMICIN SULFATE [Concomitant]
  6. RIFAMPICIN [Concomitant]
  7. TEICOPLANIN (TEICOPLANIN) [Concomitant]

REACTIONS (11)
  - Renal failure acute [None]
  - Haemoglobin decreased [None]
  - White blood cell count decreased [None]
  - Liver function test abnormal [None]
  - Inflammation [None]
  - Pain [None]
  - Pancytopenia [None]
  - Pyrexia [None]
  - Sepsis [None]
  - Tachycardia [None]
  - Stevens-Johnson syndrome [None]
